FAERS Safety Report 17654717 (Version 1)
Quarter: 2020Q2

REPORT INFORMATION
  Report Type: Spontaneous
  Country: US (occurrence: US)
  Receive Date: 20200410
  Receipt Date: 20200410
  Transmission Date: 20200713
  Serious: Yes (Death, Other)
  Sender: FDA-Public Use
  Company Number: US-ASTRAZENECA-2020SE47799

PATIENT
  Age: 27537 Day
  Sex: Female
  Weight: 74.8 kg

DRUGS (41)
  1. AMBIEN [Concomitant]
     Active Substance: ZOLPIDEM TARTRATE
     Route: 065
     Dates: start: 2013
  2. DEXILANT [Suspect]
     Active Substance: DEXLANSOPRAZOLE
     Indication: GASTROOESOPHAGEAL REFLUX DISEASE
     Route: 065
     Dates: start: 20131001
  3. LANTUS [Concomitant]
     Active Substance: INSULIN GLARGINE
     Route: 065
     Dates: start: 20160722
  4. LORAZEPAM. [Concomitant]
     Active Substance: LORAZEPAM
     Route: 065
     Dates: start: 20120207
  5. SPIRONOLACTONE. [Concomitant]
     Active Substance: SPIRONOLACTONE
     Route: 065
     Dates: start: 20160604
  6. XANAX [Concomitant]
     Active Substance: ALPRAZOLAM
     Indication: ANXIETY
     Route: 065
     Dates: start: 2013, end: 20171103
  7. TRIAMTERENE-HCTZ [Concomitant]
     Active Substance: HYDROCHLOROTHIAZIDE\TRIAMTERENE
     Route: 065
     Dates: start: 20130327
  8. CEFPODOXIME [Concomitant]
     Active Substance: CEFPODOXIME
     Route: 065
     Dates: start: 20160810
  9. ULTRAM [Concomitant]
     Active Substance: TRAMADOL HYDROCHLORIDE
     Route: 065
     Dates: start: 2013
  10. HYDROCODONE-APAP [Concomitant]
     Active Substance: ACETAMINOPHEN\HYDROCODONE
     Route: 065
     Dates: start: 20090506
  11. ALPRAZOLAM. [Concomitant]
     Active Substance: ALPRAZOLAM
     Route: 065
     Dates: start: 20120917
  12. DIGOX [Concomitant]
     Active Substance: DIGOXIN
     Route: 065
     Dates: start: 20140326
  13. DULOXETINE. [Concomitant]
     Active Substance: DULOXETINE
     Route: 065
     Dates: start: 20150727
  14. OMEPRAZOLE. [Suspect]
     Active Substance: OMEPRAZOLE
     Indication: GASTROOESOPHAGEAL REFLUX DISEASE
     Route: 065
     Dates: start: 20150603, end: 20150704
  15. COUMADIN [Concomitant]
     Active Substance: WARFARIN SODIUM
     Indication: ANTICOAGULANT THERAPY
     Route: 065
     Dates: start: 2013, end: 20171103
  16. KLOR-CON [Concomitant]
     Active Substance: POTASSIUM CHLORIDE
     Route: 065
     Dates: start: 20120913
  17. DICLOFENAC SODIUM. [Concomitant]
     Active Substance: DICLOFENAC SODIUM
     Route: 065
     Dates: start: 20140607
  18. CEFDINIR. [Concomitant]
     Active Substance: CEFDINIR
     Route: 065
     Dates: start: 20160111
  19. LISINOPRIL. [Concomitant]
     Active Substance: LISINOPRIL
     Route: 065
     Dates: start: 20160723
  20. OMEPRAZOLE. [Suspect]
     Active Substance: OMEPRAZOLE
     Indication: GASTROOESOPHAGEAL REFLUX DISEASE
     Route: 065
     Dates: start: 20100209
  21. PREVACID 24 HR [Suspect]
     Active Substance: LANSOPRAZOLE
     Indication: GASTROOESOPHAGEAL REFLUX DISEASE
     Route: 065
     Dates: start: 20090601, end: 20160701
  22. TRAZODONE [Concomitant]
     Active Substance: TRAZODONE HYDROCHLORIDE
     Indication: DEPRESSION
     Route: 065
     Dates: start: 2013, end: 20171103
  23. CITRACAL+ D [Concomitant]
     Indication: MINERAL SUPPLEMENTATION
     Route: 065
     Dates: start: 2013, end: 20171103
  24. METOPROLOL. [Concomitant]
     Active Substance: METOPROLOL
     Indication: BLOOD DISORDER
     Route: 065
     Dates: start: 2013, end: 20171103
  25. DILTIAZEM HCL [Concomitant]
     Active Substance: DILTIAZEM HYDROCHLORIDE
     Route: 065
     Dates: start: 20160722
  26. FUROSEMIDE. [Concomitant]
     Active Substance: FUROSEMIDE
     Route: 065
     Dates: start: 20160722
  27. ATENOLOL. [Concomitant]
     Active Substance: ATENOLOL
     Route: 065
     Dates: start: 2013
  28. GLIPIZIDE. [Concomitant]
     Active Substance: GLIPIZIDE
     Indication: BLOOD GLUCOSE ABNORMAL
     Route: 065
     Dates: start: 2013, end: 20171103
  29. METHYLPREDNISOLONE. [Concomitant]
     Active Substance: METHYLPREDNISOLONE
     Route: 065
     Dates: start: 20120207
  30. MEPERIDINE [Concomitant]
     Active Substance: MEPERIDINE
     Route: 065
     Dates: start: 20120207
  31. METFORMIN [Concomitant]
     Active Substance: METFORMIN HYDROCHLORIDE
     Route: 065
     Dates: start: 2013
  32. LYRICA [Concomitant]
     Active Substance: PREGABALIN
     Route: 065
  33. DEXILANT [Suspect]
     Active Substance: DEXLANSOPRAZOLE
     Indication: GASTROOESOPHAGEAL REFLUX DISEASE
     Route: 065
     Dates: start: 201310, end: 20171103
  34. MULTIVITAMIN [Concomitant]
     Active Substance: VITAMINS
     Route: 065
     Dates: start: 20160722
  35. TOBRADEX [Concomitant]
     Active Substance: DEXAMETHASONE\TOBRAMYCIN
     Route: 065
     Dates: start: 20120207
  36. MECLIZINE [Concomitant]
     Active Substance: MECLIZINE HYDROCHLORIDE
     Route: 065
     Dates: start: 20120910
  37. NOVOLIN NOS [Concomitant]
     Active Substance: INSULIN HUMAN
     Route: 065
     Dates: start: 20151110
  38. FERROUS SULFATE. [Concomitant]
     Active Substance: FERROUS SULFATE
     Route: 065
     Dates: start: 20160129
  39. CETAPHIL [Concomitant]
     Route: 065
     Dates: start: 2013
  40. ZOLOFT [Concomitant]
     Active Substance: SERTRALINE HYDROCHLORIDE
     Route: 065
     Dates: start: 2013
  41. ACTONEL [Concomitant]
     Active Substance: RISEDRONATE SODIUM
     Route: 065
     Dates: start: 2013

REACTIONS (11)
  - Metabolic disorder [Fatal]
  - Major depression [Unknown]
  - Panic disorder [Unknown]
  - Anxiety disorder [Unknown]
  - Cardio-respiratory arrest [Fatal]
  - Hyperparathyroidism secondary [Unknown]
  - Gastrooesophageal reflux disease [Not Recovered/Not Resolved]
  - Chronic kidney disease [Fatal]
  - Type 2 diabetes mellitus [Fatal]
  - Acute kidney injury [Unknown]
  - Insomnia [Unknown]

NARRATIVE: CASE EVENT DATE: 20120311
